FAERS Safety Report 14561081 (Version 3)
Quarter: 2018Q2

REPORT INFORMATION
  Report Type: Other
  Country: GR (occurrence: GR)
  Receive Date: 20180222
  Receipt Date: 20180530
  Transmission Date: 20180711
  Serious: Yes (Hospitalization, Other)
  Sender: FDA-Public Use
  Company Number: GR-MACLEODS PHARMACEUTICALS US LTD-MAC2018010043

PATIENT

DRUGS (6)
  1. IRBESARTAN 300MG TABLET [Suspect]
     Active Substance: IRBESARTAN
     Indication: CARDIAC FAILURE
     Dosage: 300 MG, QD
     Route: 048
  2. AMILORIDE / FUROSEMIDE [Suspect]
     Active Substance: AMILORIDE\FUROSEMIDE
     Indication: CARDIAC FAILURE
     Dosage: 1 DF, QD, (40 MG (FUROSEMIDE)+5 MG (AMILORIDE), BID
     Route: 065
  3. AMILORIDE / FUROSEMIDE [Suspect]
     Active Substance: AMILORIDE\FUROSEMIDE
     Dosage: UNK,
     Route: 065
  4. CARVEDILOL. [Suspect]
     Active Substance: CARVEDILOL
     Indication: CARDIAC FAILURE
     Dosage: 6.25 MG, BID
     Route: 048
  5. DICLOFENAC [Suspect]
     Active Substance: DICLOFENAC
     Indication: CARDIAC FAILURE
     Dosage: UNK
     Route: 065
  6. AMILORIDE / FUROSEMIDE [Suspect]
     Active Substance: AMILORIDE\FUROSEMIDE
     Dosage: UNK

REACTIONS (14)
  - Drug administration error [Unknown]
  - Product use issue [Recovered/Resolved]
  - Renal impairment [Recovered/Resolved]
  - Electrocardiogram T wave abnormal [Unknown]
  - Blood sodium increased [Unknown]
  - Hyperkalaemia [Recovered/Resolved]
  - Blood potassium increased [Unknown]
  - Hyponatraemia [Recovered/Resolved]
  - Blood urea increased [Unknown]
  - Blood creatinine increased [Unknown]
  - Orthostatic hypotension [Recovered/Resolved]
  - Muscular weakness [Recovered/Resolved]
  - Product use in unapproved indication [Recovered/Resolved]
  - Blood urea nitrogen/creatinine ratio increased [None]
